FAERS Safety Report 8701543 (Version 2)
Quarter: 2012Q4

REPORT INFORMATION
  Report Type: 
  Country: DE (occurrence: DE)
  Receive Date: 20120803
  Receipt Date: 20120907
  Transmission Date: 20130627
  Serious: Yes (Other)
  Sender: FDA-Public Use
  Company Number: DE-AMGEN-DEUSP2012047007

PATIENT
  Sex: Male

DRUGS (3)
  1. ENBREL [Suspect]
     Indication: PRODUCT USED FOR UNKNOWN INDICATION
     Dosage: 50 mg, 2x/week
  2. ENBREL [Suspect]
     Dosage: 25 mg, 2x/week
  3. METHOTREXATE [Concomitant]
     Dosage: UNK

REACTIONS (2)
  - Melkersson-Rosenthal syndrome [Unknown]
  - Cheilitis granulomatosa [Unknown]
